FAERS Safety Report 11746972 (Version 1)
Quarter: 2015Q4

REPORT INFORMATION
  Report Type: Report from Study
  Country: CN (occurrence: CN)
  Receive Date: 20151117
  Receipt Date: 20151117
  Transmission Date: 20160304
  Serious: Yes (Other)
  Sender: FDA-Public Use
  Company Number: CN-009507513-1511CHN006748

PATIENT

DRUGS (2)
  1. INTRON A [Suspect]
     Active Substance: INTERFERON ALFA-2B
     Indication: CHRONIC HEPATITIS C
     Dosage: 3 MILLION IU/M2 THREE TIMES WEEKLY
     Route: 058
  2. RIBAVIRIN. [Suspect]
     Active Substance: RIBAVIRIN
     Indication: CHRONIC HEPATITIS C
     Dosage: 15 MG/KG, TWO DIVIDED DAILY DOSES
     Route: 048

REACTIONS (1)
  - Epilepsy [Recovered/Resolved]
